FAERS Safety Report 9614485 (Version 2)
Quarter: 2013Q4

REPORT INFORMATION
  Report Type: Spontaneous
  Country: US (occurrence: US)
  Receive Date: 20131011
  Receipt Date: 20131203
  Transmission Date: 20140711
  Serious: Yes (Other)
  Sender: FDA-Public Use
  Company Number: US-PFIZER INC-2013291014

PATIENT
  Age: 13 Year
  Sex: Female
  Weight: 38.1 kg

DRUGS (3)
  1. ADVIL [Suspect]
     Indication: HEADACHE
     Dosage: 200 MG, UNK
  2. ADVIL [Suspect]
     Indication: ABDOMINAL PAIN UPPER
  3. ADVIL [Suspect]
     Indication: BACK PAIN

REACTIONS (8)
  - Myocardial infarction [Unknown]
  - Aphagia [Unknown]
  - Abdominal pain upper [Unknown]
  - Vomiting [Unknown]
  - Dyspepsia [Unknown]
  - Back pain [Unknown]
  - Chest pain [Unknown]
  - Gastric disorder [Unknown]
